FAERS Safety Report 7164530-4 (Version None)
Quarter: 2010Q4

REPORT INFORMATION
  Report Type: 
  Country: None (occurrence: None)
  Receive Date: 20101215
  Receipt Date: 20101207
  Transmission Date: 20110411
  Serious: Yes (Other)
  Sender: FDA-Public Use
  Company Number: US-US-EMD SERONO, INC.-7017994

PATIENT
  Sex: Female

DRUGS (5)
  1. REBIF [Suspect]
     Indication: MULTIPLE SCLEROSIS
     Dates: start: 20040607
  2. REBIF [Suspect]
     Route: 058
  3. SIMVASTATIN [Concomitant]
     Indication: BLOOD CHOLESTEROL INCREASED
  4. NAPROSYN [Concomitant]
     Indication: PAIN IN EXTREMITY
  5. DILAUDID [Concomitant]
     Indication: PAIN IN EXTREMITY

REACTIONS (4)
  - BLOOD CHOLESTEROL INCREASED [None]
  - DIARRHOEA [None]
  - HEPATIC STEATOSIS [None]
  - LIVER FUNCTION TEST ABNORMAL [None]
